FAERS Safety Report 4393538-7 (Version None)
Quarter: 2004Q3

REPORT INFORMATION
  Report Type: 
  Country: None (occurrence: None)
  Receive Date: 20040701
  Receipt Date: 20040618
  Transmission Date: 20050211
  Serious: Yes (Other)
  Sender: FDA-Public Use
  Company Number: 2004041827

PATIENT
  Sex: Male
  Weight: 72 kg

DRUGS (6)
  1. ATORVASTATIN CALCIUM [Suspect]
     Indication: BLOOD CHOLESTEROL INCREASED
     Dosage: 20 MG (20 MG, 1 1IN 1 D), ORAL
     Route: 048
     Dates: start: 20040525, end: 20040527
  2. SULFASALAZINE [Concomitant]
  3. INSULIN LISPRO (INSULIN LISPRO) [Concomitant]
  4. LISINOPRIL [Concomitant]
  5. ACETYLSALICYLIC ACID SRT [Concomitant]
  6. INSULIN GLARGINE (INSULIN GLARGINE) [Concomitant]

REACTIONS (2)
  - BLOOD CREATINE PHOSPHOKINASE INCREASED [None]
  - POLYMYALGIA [None]
